FAERS Safety Report 17160746 (Version 1)
Quarter: 2019Q4

REPORT INFORMATION
  Report Type: Spontaneous
  Country: US (occurrence: US)
  Receive Date: 20191216
  Receipt Date: 20191216
  Transmission Date: 20200122
  Serious: No
  Sender: FDA-Public Use
  Company Number: US-ARRAY-2019-06925

PATIENT

DRUGS (2)
  1. MEKTOVI [Suspect]
     Active Substance: BINIMETINIB
     Indication: MALIGNANT NEOPLASM OF CONJUNCTIVA
     Dosage: 30 MG, BID
     Route: 065
  2. BRAFTOVI [Suspect]
     Active Substance: ENCORAFENIB
     Indication: MALIGNANT NEOPLASM OF CONJUNCTIVA
     Dosage: 300 MG, QD
     Route: 048

REACTIONS (2)
  - Eye irritation [Unknown]
  - Product use in unapproved indication [Unknown]
